FAERS Safety Report 8119844-8 (Version None)
Quarter: 2012Q1

REPORT INFORMATION
  Report Type: 
  Country: None (occurrence: None)
  Receive Date: 20120206
  Receipt Date: 20120206
  Transmission Date: 20120608
  Serious: Yes (Disabling)
  Sender: FDA-Public Use
  Company Number: None

PATIENT
  Sex: Female
  Weight: 77.1115 kg

DRUGS (1)
  1. ZOCOR [Suspect]
     Indication: BLOOD CHOLESTEROL
     Dates: start: 20060501, end: 20061001

REACTIONS (6)
  - SPEECH DISORDER [None]
  - DISTURBANCE IN ATTENTION [None]
  - MUSCLE SPASMS [None]
  - HYPOKINESIA [None]
  - ACTIVITIES OF DAILY LIVING IMPAIRED [None]
  - HEARING IMPAIRED [None]
